FAERS Safety Report 5902942-4 (Version None)
Quarter: 2008Q3

REPORT INFORMATION
  Report Type: 
  Country: None (occurrence: None)
  Receive Date: 20080930
  Receipt Date: 20080925
  Transmission Date: 20090109
  Serious: Yes (Hospitalization)
  Sender: FDA-Public Use
  Company Number: EG-AVENTIS-200819204GDDC

PATIENT
  Age: 39 Year
  Sex: Female

DRUGS (1)
  1. LANTUS [Suspect]
     Indication: DIABETES MELLITUS
     Route: 058
     Dates: start: 20080728, end: 20080813

REACTIONS (2)
  - ABDOMINAL WALL ABSCESS [None]
  - HYPERGLYCAEMIA [None]
